FAERS Safety Report 8973034 (Version 4)
Quarter: 2013Q2

REPORT INFORMATION
  Report Type: Report from Study
  Country: US (occurrence: US)
  Receive Date: 20121219
  Receipt Date: 20130402
  Transmission Date: 20140414
  Serious: Yes (Other)
  Sender: FDA-Public Use
  Company Number: US-ASTELLAS-2012US011784

PATIENT
  Age: 63 Year
  Sex: Female

DRUGS (1)
  1. ERLOTINIB TABLET [Suspect]
     Indication: MASS
     Dosage: 100 MG, UID/QD
     Route: 048
     Dates: start: 20121116

REACTIONS (6)
  - Off label use [Unknown]
  - Visual impairment [Unknown]
  - Epistaxis [Unknown]
  - Diarrhoea [Unknown]
  - Rash [Unknown]
  - Malignant neoplasm progression [Not Recovered/Not Resolved]
